FAERS Safety Report 6980139-7 (Version None)
Quarter: 2010Q3

REPORT INFORMATION
  Report Type: 
  Country: None (occurrence: None)
  Receive Date: 20100914
  Receipt Date: 20100907
  Transmission Date: 20110219
  Serious: Yes (Hospitalization, Other)
  Sender: FDA-Public Use
  Company Number: CA-ABBOTT-10P-028-0666163-00

PATIENT
  Sex: Female
  Weight: 97 kg

DRUGS (4)
  1. HUMIRA [Suspect]
     Indication: PSORIATIC ARTHROPATHY
     Route: 058
     Dates: start: 20100114, end: 20100517
  2. HUMIRA [Suspect]
  3. RAMIPRIL [Concomitant]
     Indication: HYPERTENSION
     Route: 048
     Dates: start: 20090801, end: 20100701
  4. RAMIPRIL [Concomitant]
     Route: 048
     Dates: start: 20100701

REACTIONS (3)
  - BACK PAIN [None]
  - GAIT DISTURBANCE [None]
  - HYPERTENSION [None]
